FAERS Safety Report 7134898-3 (Version None)
Quarter: 2010Q4

REPORT INFORMATION
  Report Type: 
  Country: None (occurrence: None)
  Receive Date: 20101129
  Receipt Date: 20101129
  Transmission Date: 20110411
  Serious: Yes (Life-Threatening, Other)
  Sender: FDA-Public Use
  Company Number: None

PATIENT
  Sex: Male
  Weight: 102.3 kg

DRUGS (1)
  1. UROCIT-K [Suspect]
     Indication: NEPHROLITHIASIS
     Dosage: 15 MEQ 1 TABLET TWICE A DA ORAL
     Route: 048
     Dates: start: 20100601, end: 20100901

REACTIONS (2)
  - DRUG INEFFECTIVE [None]
  - MEDICATION RESIDUE [None]
